FAERS Safety Report 5044520-8 (Version None)
Quarter: 2006Q3

REPORT INFORMATION
  Report Type: 
  Country: None (occurrence: None)
  Receive Date: 20060706
  Receipt Date: 20060626
  Transmission Date: 20061208
  Serious: Yes (Other)
  Sender: FDA-Public Use
  Company Number: US-BRISTOL-MYERS SQUIBB COMPANY-13424718

PATIENT
  Age: 54 Year
  Sex: Male
  Weight: 65 kg

DRUGS (5)
  1. WARFARIN SODIUM [Suspect]
     Indication: ATRIAL FIBRILLATION
  2. METHIMAZOLE [Interacting]
     Indication: BASEDOW'S DISEASE
  3. METOPROLOL TARTRATE [Concomitant]
  4. DEXAMETHASONE TAB [Concomitant]
  5. SIMVASTATIN [Concomitant]
     Dates: end: 20030818

REACTIONS (3)
  - DRUG INTERACTION [None]
  - HYPOTHYROIDISM [None]
  - INTERNATIONAL NORMALISED RATIO FLUCTUATION [None]
